FAERS Safety Report 8103203-8 (Version None)
Quarter: 2012Q1

REPORT INFORMATION
  Report Type: 
  Country: None (occurrence: None)
  Receive Date: 20120127
  Receipt Date: 20120112
  Transmission Date: 20120608
  Serious: Yes (Other)
  Sender: FDA-Public Use
  Company Number: NL-DEXPHARM-20120013

PATIENT
  Age: 72 Year
  Sex: Female

DRUGS (8)
  1. INSULIN [Concomitant]
  2. PANTOPRAZOLE [Suspect]
  3. METOPROLOL [Concomitant]
  4. ATORVASTATIN [Concomitant]
  5. OMEPRAZOLE [Suspect]
  6. METFORMIN HCL [Concomitant]
  7. HYDROCHLOROTHIAZIDE [Concomitant]
  8. TRIAMTERENE [Concomitant]

REACTIONS (7)
  - TUBULOINTERSTITIAL NEPHRITIS [None]
  - OESOPHAGEAL CANDIDIASIS [None]
  - HYPOGLYCAEMIA [None]
  - GASTRITIS [None]
  - OEDEMA PERIPHERAL [None]
  - DEVICE INEFFECTIVE [None]
  - EOSINOPHILIA [None]
